FAERS Safety Report 23564992 (Version 3)
Quarter: 2024Q1

REPORT INFORMATION
  Report Type: Spontaneous
  Country: GR (occurrence: GR)
  Receive Date: 20240226
  Receipt Date: 20240329
  Transmission Date: 20240410
  Serious: No
  Sender: FDA-Public Use
  Company Number: GR-PFIZER INC-PV202400018312

PATIENT
  Age: 12 Year
  Sex: Male
  Weight: 33 kg

DRUGS (1)
  1. GENOTROPIN [Suspect]
     Active Substance: SOMATROPIN
     Indication: Growth hormone deficiency
     Dosage: 1.2 MG / 6 DAYS / 1 DAY OFF
     Route: 058
     Dates: start: 202401

REACTIONS (1)
  - Wrong technique in device usage process [Unknown]
